FAERS Safety Report 4396063-2 (Version None)
Quarter: 2004Q2

REPORT INFORMATION
  Report Type: 
  Country: None (occurrence: None)
  Receive Date: 20040621
  Receipt Date: 20031125
  Transmission Date: 20050107
  Serious: Yes (Death)
  Sender: FDA-Public Use
  Company Number: USA-2003-0011073

PATIENT
  Age: 54 Year
  Sex: Male
  Weight: 98.4 kg

DRUGS (10)
  1. OXYCONTIN [Suspect]
     Dosage: ORAL
     Route: 048
  2. HYDROCODONE BITARTRATE [Suspect]
  3. ALPAZOLAM (ALPAZOLAM) [Suspect]
  4. DIPHENHYDRAMINE HCL [Suspect]
  5. ACETAMINOPHEN [Suspect]
  6. GEMFIBROZIL [Suspect]
  7. NADOLOL [Suspect]
  8. QUETIAPINE (QUETIAPINE) [Suspect]
  9. FENTANYL [Suspect]
  10. GABAPENTIN [Suspect]

REACTIONS (2)
  - ACCIDENTAL OVERDOSE [None]
  - MULTIPLE DRUG OVERDOSE [None]
